FAERS Safety Report 9412401 (Version 1)
Quarter: 2013Q2

REPORT INFORMATION
  Report Type: Spontaneous
  Country: IT (occurrence: None)
  Receive Date: 20130510
  Receipt Date: 20130510
  Transmission Date: 20140414
  Serious: Yes (Hospitalization)
  Sender: FDA-Public Use
  Company Number: 2013SA035533

PATIENT
  Age: 73 Year
  Sex: Male
  Weight: 92 kg

DRUGS (10)
  1. CABAZITAXEL [Suspect]
     Indication: PROSTATE CANCER METASTATIC
     Dosage: EVERY THREE WEEKS
     Route: 042
     Dates: start: 20120726, end: 20120726
  2. PREDNISONE (PREDNISONE) [Suspect]
     Indication: PROSTATE CANCER METASTATIC
     Route: 048
     Dates: start: 20120726, end: 20130218
  3. ZINADRIL [Concomitant]
  4. TRIPTORELIN [Concomitant]
  5. SIMVASTATIN [Concomitant]
  6. BISOPROLOL [Concomitant]
  7. FUROSEMIDE [Concomitant]
  8. RAMIPRIL [Concomitant]
  9. XATRAL [Concomitant]
  10. HUMALOG [Concomitant]

REACTIONS (3)
  - Pelvic venous thrombosis [None]
  - Haemorrhage intracranial [None]
  - Deep vein thrombosis [None]
